FAERS Safety Report 5319201-3 (Version None)
Quarter: 2007Q2

REPORT INFORMATION
  Report Type: 
  Country: None (occurrence: None)
  Receive Date: 20070508
  Receipt Date: 20070502
  Transmission Date: 20071010
  Serious: Yes (Death)
  Sender: FDA-Public Use
  Company Number: IT-ASTRAZENECA-2007SE02343

PATIENT
  Age: 23 Year
  Sex: Male

DRUGS (2)
  1. LIDOCAINE [Suspect]
     Route: 065
  2. COCAINE [Suspect]

REACTIONS (1)
  - INTENTIONAL OVERDOSE [None]
